FAERS Safety Report 5503625-5 (Version None)
Quarter: 2007Q4

REPORT INFORMATION
  Report Type: 
  Country: None (occurrence: None)
  Receive Date: 20071029
  Receipt Date: 20071018
  Transmission Date: 20080405
  Serious: Yes (Death)
  Sender: FDA-Public Use
  Company Number: 2007S1000761

PATIENT
  Age: 37 Year
  Sex: Male

DRUGS (5)
  1. AZATHIOPRINE [Suspect]
     Indication: CROHN'S DISEASE
     Dosage: 100 MG; QD
     Dates: start: 20000501
  2. VOLTAREN [Concomitant]
  3. PREDNISONE [Concomitant]
  4. PENTASA [Concomitant]
  5. METRONIDAZOLE [Concomitant]

REACTIONS (14)
  - ANOREXIA [None]
  - ARTHRITIS [None]
  - ARTHROPATHY [None]
  - CERULOPLASMIN INCREASED [None]
  - COLONIC STENOSIS [None]
  - HEPATIC ENZYME ABNORMAL [None]
  - HEPATIC NEOPLASM MALIGNANT [None]
  - HEPATOMEGALY [None]
  - INFLAMMATORY BOWEL DISEASE [None]
  - LIVER INDURATION [None]
  - LIVER TENDERNESS [None]
  - LYMPHADENOPATHY [None]
  - SPONDYLITIS [None]
  - WEIGHT DECREASED [None]
